FAERS Safety Report 9054527 (Version 1)
Quarter: 2013Q1

REPORT INFORMATION
  Report Type: Spontaneous
  Country: IT (occurrence: IT)
  Receive Date: 20130208
  Receipt Date: 20130208
  Transmission Date: 20140127
  Serious: Yes (Hospitalization)
  Sender: FDA-Public Use
  Company Number: IT-009507513-1302ITA001718

PATIENT
  Age: 72 Year
  Sex: Female

DRUGS (4)
  1. DESLORATADINE [Suspect]
     Indication: PYREXIA
     Dosage: 1 DF, ONCE
     Route: 048
     Dates: start: 20130123, end: 20130123
  2. IBUPROFEN [Suspect]
     Indication: HERPES ZOSTER
     Dosage: UNK
     Route: 048
     Dates: start: 20130117, end: 20130120
  3. BRIVUDINE [Suspect]
     Indication: HERPES ZOSTER
     Dosage: 125 MG, QD
     Route: 048
     Dates: start: 20130116, end: 20130122
  4. TACHIPIRINA [Suspect]
     Indication: PYREXIA
     Dosage: 2000 MG, QD
     Route: 048
     Dates: start: 20130123, end: 20130123

REACTIONS (3)
  - Pyrexia [Recovering/Resolving]
  - Rash generalised [Recovering/Resolving]
  - Off label use [None]
